FAERS Safety Report 5932338-0 (Version None)
Quarter: 2008Q4

REPORT INFORMATION
  Report Type: 
  Country: None (occurrence: None)
  Receive Date: 20081009
  Receipt Date: 20080709
  Transmission Date: 20090506
  Serious: Yes (Other)
  Sender: FDA-Public Use
  Company Number: PHEH2005US01236

PATIENT
  Age: 58 Year
  Sex: Male
  Weight: 93.4 kg

DRUGS (13)
  1. ZOMETA [Suspect]
     Indication: METASTASES TO BONE
     Dosage: 4 MG, Q3WK
     Dates: start: 20021104, end: 20030903
  2. ANTINEOPLASTIC AGENTS (NO INGREDIENTS/SUBSTANCES) [Concomitant]
  3. ZOCOR (HYDROCODONE BITARTRATE, PARACETAMOL) [Concomitant]
  4. WELLBUTRIN SR [Concomitant]
  5. DECADRON [Concomitant]
  6. REMERON [Concomitant]
  7. LEXAPRO [Concomitant]
  8. CASODEX [Concomitant]
  9. CARBOPLATIN [Concomitant]
  10. LUPRON [Concomitant]
  11. TAXOL [Concomitant]
  12. ATIVAN [Concomitant]
  13. COUMADIN [Concomitant]

REACTIONS (16)
  - BONE DISORDER [None]
  - BONE OPERATION [None]
  - DENTAL CARE [None]
  - DENTAL OPERATION [None]
  - FISTULA DISCHARGE [None]
  - GINGIVAL OPERATION [None]
  - IMPAIRED HEALING [None]
  - JAW DISORDER [None]
  - JAW OPERATION [None]
  - NUCLEAR MAGNETIC RESONANCE IMAGING ABNORMAL [None]
  - OSTECTOMY [None]
  - OSTEONECROSIS [None]
  - PERIODONTAL OPERATION [None]
  - SURGERY [None]
  - SWELLING [None]
  - TOOTH EXTRACTION [None]
